FAERS Safety Report 9175632 (Version 2)
Quarter: 2012Q4

REPORT INFORMATION
  Report Type: 
  Country: US (occurrence: US)
  Receive Date: 20120911
  Receipt Date: 20121101
  Transmission Date: 20130627
  Serious: Yes (Hospitalization, Other)
  Sender: FDA-Public Use
  Company Number: US-RB-044179-12

PATIENT
  Sex: Male

DRUGS (5)
  1. SUBOXONE TABLET [Suspect]
     Indication: DRUG DEPENDENCE
     Route: 060
     Dates: start: 2010, end: 2011
  2. GENERIC BUPRENORPHINE [Suspect]
     Indication: DRUG DEPENDENCE
     Route: 060
     Dates: start: 2011, end: 2012
  3. NALTREXONE [Suspect]
     Dosage: Unknown dosing details
     Route: 048
     Dates: start: 2012, end: 2012
  4. NALTREXONE [Suspect]
     Indication: DRUG DEPENDENCE
     Dosage: Pieces of tablet daily
     Route: 048
     Dates: start: 2012
  5. XANAX [Concomitant]
     Indication: INSOMNIA
     Dosage: 1/2 tablet daily
     Route: 065

REACTIONS (8)
  - Angina pectoris [Recovered/Resolved]
  - Chest pain [Recovering/Resolving]
  - Palpitations [Recovering/Resolving]
  - Suicidal ideation [Recovered/Resolved]
  - Depression [Recovered/Resolved]
  - Drug withdrawal syndrome [Recovered/Resolved]
  - Wrong technique in drug usage process [Recovered/Resolved]
  - Underdose [Recovered/Resolved]
